FAERS Safety Report 25959504 (Version 1)
Quarter: 2025Q4

REPORT INFORMATION
  Report Type: Report from Study
  Country: CA (occurrence: CA)
  Receive Date: 20251026
  Receipt Date: 20251026
  Transmission Date: 20260117
  Serious: Yes (Other)
  Sender: ALEXION PHARMACEUTICALS
  Company Number: CA-AstraZeneca-CH-00977060A

PATIENT
  Sex: Female

DRUGS (6)
  1. SOLIRIS [Suspect]
     Active Substance: ECULIZUMAB
     Indication: Paroxysmal nocturnal haemoglobinuria
     Dosage: 600 MILLIGRAM, QW
     Dates: start: 20140219, end: 20140312
  2. SOLIRIS [Suspect]
     Active Substance: ECULIZUMAB
     Dosage: 900 MILLIGRAM, Q2W
     Dates: start: 20140319
  3. CYKLOKAPRON [Concomitant]
     Active Substance: TRANEXAMIC ACID
     Indication: Epistaxis
     Dosage: 1000 MILLIGRAM, Q8H
     Route: 065
     Dates: start: 20190101
  4. IRBESARTAN [Concomitant]
     Active Substance: IRBESARTAN
     Dosage: 12.5-150MG
     Route: 065
     Dates: start: 20140101
  5. Rhinaris [Concomitant]
     Dosage: UNK
     Route: 065
  6. FOLIC ACID [Concomitant]
     Active Substance: FOLIC ACID
     Dosage: 5 MILLIGRAM, EVERY OTHER DAY PO

REACTIONS (2)
  - Platelet count decreased [Unknown]
  - Pain in extremity [Unknown]
